FAERS Safety Report 5925477-1 (Version None)
Quarter: 2008Q4

REPORT INFORMATION
  Report Type: 
  Country: None (occurrence: None)
  Receive Date: 20081021
  Receipt Date: 20081015
  Transmission Date: 20090506
  Serious: Yes (Hospitalization)
  Sender: FDA-Public Use
  Company Number: NO-AVENTIS-200819847GDDC

PATIENT
  Age: 69 Year
  Sex: Male

DRUGS (6)
  1. DOCETAXEL [Suspect]
     Indication: PROSTATE CANCER
     Route: 042
     Dates: start: 20080829, end: 20080923
  2. PREDNISONE TAB [Suspect]
     Indication: PROSTATE CANCER
     Route: 048
     Dates: start: 20080828
  3. RISEDRONATE SODIUM [Suspect]
     Indication: PROSTATE CANCER
     Route: 048
     Dates: start: 20080829
  4. FELODIPINE [Concomitant]
     Dates: start: 19930101
  5. ATENOLOL [Concomitant]
     Dates: start: 19830101
  6. ASPIRIN [Concomitant]
     Dates: start: 20051001

REACTIONS (2)
  - HYPERGLYCAEMIA [None]
  - JOINT ABSCESS [None]
